FAERS Safety Report 24249239 (Version 3)
Quarter: 2024Q4

REPORT INFORMATION
  Report Type: Spontaneous
  Country: US (occurrence: US)
  Receive Date: 20240826
  Receipt Date: 20241018
  Transmission Date: 20250115
  Serious: No
  Sender: PFIZER
  Company Number: US-PFIZER INC-202400239471

PATIENT
  Age: 80 Year
  Sex: Female
  Weight: 48.99 kg

DRUGS (18)
  1. PAXLOVID [Suspect]
     Active Substance: NIRMATRELVIR\RITONAVIR
     Indication: COVID-19 treatment
     Dosage: [NIRMATRELVIR 300 MG]/[RITONAVIR 100 MG]; 2X/DAY
     Route: 048
     Dates: start: 20240802, end: 20240806
  2. TRELEGY ELLIPTA [Concomitant]
     Active Substance: FLUTICASONE FUROATE\UMECLIDINIUM BROMIDE\VILANTEROL TRIFENATATE
     Indication: Asthma
     Dosage: 200/62.5/25 MCG, 1X/DAY (ONCE A DAY IN THE MORNING)
  3. TRELEGY ELLIPTA [Concomitant]
     Active Substance: FLUTICASONE FUROATE\UMECLIDINIUM BROMIDE\VILANTEROL TRIFENATATE
     Dosage: 200-62.5-25 MCG / ACT INHALE 1 PUFF INTO THE LUNGS EVERY DAY
  4. LEVOTHYROXINE [Concomitant]
     Active Substance: LEVOTHYROXINE
     Indication: Thyroid disorder
     Dosage: 88 UG, 1X/DAY (ONCE A DAY IN THE MORNING)
  5. CLOBETASOL PROPIONATE [Concomitant]
     Active Substance: CLOBETASOL PROPIONATE
     Dosage: 1 APPLICATION TO AFFECT AREA EXTERNALLY TWICE A DAY PRN, NOTES TO PHARMACIST AS NEEDED
  6. BIFIDOBACTERIUM ANIMALIS LACTIS [Concomitant]
     Active Substance: BIFIDOBACTERIUM ANIMALIS LACTIS
     Route: 048
  7. XYZAL [Concomitant]
     Active Substance: LEVOCETIRIZINE DIHYDROCHLORIDE
     Dosage: 1 TABLET IN THE EVENING ORALLY ONCE A DAY, NOTES TO PHARMACIST AS NEEDED
     Route: 048
  8. VITAMIN D NOS [Concomitant]
     Active Substance: CHOLECALCIFEROL\ERGOCALCIFEROL
     Dosage: OTC ONCE A DAY
  9. COENZYME Q10 [Concomitant]
     Active Substance: DIETARY SUPPLEMENT\UBIDECARENONE
     Dosage: 30 MG 1 TABLET ONCE A DAY
  10. MAGNESIUM [Concomitant]
     Active Substance: MAGNESIUM
     Dosage: UNK, 1X/DAY
  11. GLUCOSAMINE [Concomitant]
     Active Substance: GLUCOSAMINE
     Dosage: UNK, 1X/DAY
  12. MECLIZINE HYDROCHLORIDE [Concomitant]
     Active Substance: MECLIZINE HYDROCHLORIDE
     Dosage: 25 MG 1 TABLET AS NEEDED ORALLY ONCE A DAY, NOTES TO PHARMACIST AS NEEDED
     Route: 048
  13. ZINC [Concomitant]
     Active Substance: ZINC
     Dosage: 25 MG 1 TABLET ORALLY ONCE A DAY
     Route: 048
  14. CALCIUM [Concomitant]
     Active Substance: CALCIUM
     Dosage: 1500 MG TWICE A DAY(BID)
  15. FISH OIL [Concomitant]
     Active Substance: FISH OIL
     Dosage: 1000 MG 1 CAPSULE ORALLY ONCE A DAY
     Route: 048
  16. ZOLPIDEM TARTRATE [Concomitant]
     Active Substance: ZOLPIDEM TARTRATE
     Dosage: 5 MG TAKE 1 TABLET BY MOUTH EVERY DAY IN THE MORNING ON EMPTY STOMACH, 90, 90 TABLET, REFILLS: 1
     Route: 048
  17. PROAIR HFA [Concomitant]
     Active Substance: ALBUTEROL SULFATE
     Dosage: 108 (90 BASE) MCG / ACT 2 PUFFS AS NEEDED INHALATION EVERY 4 HRS
  18. PREDNISONE [Concomitant]
     Active Substance: PREDNISONE
     Dosage: 20 MG 1 TABLET ORALLY ONCE A DAY, 5 DAYS, 5 TABLET
     Route: 048
     Dates: end: 20240806

REACTIONS (4)
  - Myalgia [Recovering/Resolving]
  - Gait disturbance [Recovering/Resolving]
  - Joint range of motion decreased [Recovering/Resolving]
  - Arthralgia [Recovering/Resolving]

NARRATIVE: CASE EVENT DATE: 20240101
